FAERS Safety Report 9808252 (Version 2)
Quarter: 2014Q3

REPORT INFORMATION
  Report Type: Spontaneous
  Country: US (occurrence: US)
  Receive Date: 20140110
  Receipt Date: 20140829
  Transmission Date: 20150326
  Serious: No
  Sender: FDA-Public Use
  Company Number: US-009507513-1401USA003425

PATIENT
  Sex: Female
  Weight: 51.66 kg

DRUGS (3)
  1. FERROUS SULFATE [Concomitant]
     Active Substance: FERROUS SULFATE\FERROUS SULFATE, DRIED
     Indication: IRON DEFICIENCY ANAEMIA
     Dosage: 45 MG, BID
     Route: 048
     Dates: start: 20110428
  2. NIFEREX [Concomitant]
     Active Substance: IRON\POLYSACCHARIDES
     Indication: IRON DEFICIENCY ANAEMIA
     Dosage: 150 MG, QD
     Route: 048
     Dates: start: 20120618
  3. NUVARING [Suspect]
     Active Substance: ETHINYL ESTRADIOL\ETONOGESTREL
     Indication: CONTRACEPTION
     Dosage: 0.015MG/0.120MG, LEAVE 1 RING IN PLACE FOR 3 WEEKS, THEN REMOVE, AFTER 7 DAY BREAK REPLACE W/NEW RIN
     Route: 067
     Dates: start: 20120207, end: 20120710

REACTIONS (3)
  - Deep vein thrombosis [Unknown]
  - Thrombophlebitis [Unknown]
  - Coagulopathy [Unknown]

NARRATIVE: CASE EVENT DATE: 20120710
